FAERS Safety Report 4985676-2 (Version None)
Quarter: 2006Q2

REPORT INFORMATION
  Report Type: 
  Country: None (occurrence: None)
  Receive Date: 20060428
  Receipt Date: 20051104
  Transmission Date: 20061013
  Serious: No
  Sender: FDA-Public Use
  Company Number: US-GLAXOSMITHKLINE-A0580934A

PATIENT
  Age: 49 Year
  Sex: Female

DRUGS (5)
  1. ZOFRAN [Suspect]
     Indication: DRUG USE FOR UNKNOWN INDICATION
     Dosage: 4MG TWICE PER DAY
     Route: 042
     Dates: start: 20050427
  2. RELAFEN [Concomitant]
     Route: 065
  3. DURAGESIC-100 [Concomitant]
  4. LIDODERM PATCH [Concomitant]
  5. REQUIP [Concomitant]

REACTIONS (2)
  - INFUSION SITE REACTION [None]
  - PHARMACEUTICAL PRODUCT COMPLAINT [None]
